FAERS Safety Report 8563467-3 (Version None)
Quarter: 2012Q3

REPORT INFORMATION
  Report Type: 
  Country: None (occurrence: None)
  Receive Date: 20120802
  Receipt Date: 20120730
  Transmission Date: 20120928
  Serious: Yes (Death, Other)
  Sender: FDA-Public Use
  Company Number: CN-ROCHE-1087016

PATIENT
  Sex: Male

DRUGS (17)
  1. DEXAMETHASONE [Concomitant]
     Indication: DIFFUSE LARGE B-CELL LYMPHOMA
     Dates: start: 20090126
  2. DEXAMETHASONE [Concomitant]
     Dates: start: 20091009
  3. IFOSFAMIDE [Concomitant]
     Dates: start: 20090815
  4. CYTARABINE [Concomitant]
     Indication: DIFFUSE LARGE B-CELL LYMPHOMA
     Dates: start: 20090717
  5. LIPOSOMAL ADRIAMYCIN [Concomitant]
     Indication: DIFFUSE LARGE B-CELL LYMPHOMA
  6. OXALIPLATIN [Concomitant]
     Indication: DIFFUSE LARGE B-CELL LYMPHOMA
     Dates: start: 20090522
  7. EPIRUBICIN [Concomitant]
     Indication: DIFFUSE LARGE B-CELL LYMPHOMA
     Dates: start: 20090126
  8. DEXAMETHASONE [Concomitant]
     Dates: start: 20090626
  9. ETOPOSIDE [Concomitant]
     Dates: start: 20091020
  10. GEMCITABINE HYDROCHLORIDE [Concomitant]
     Indication: DIFFUSE LARGE B-CELL LYMPHOMA
     Dates: start: 20090522
  11. IFOSFAMIDE [Concomitant]
     Indication: DIFFUSE LARGE B-CELL LYMPHOMA
     Dates: start: 20090626
  12. ETOPOSIDE [Concomitant]
     Indication: DIFFUSE LARGE B-CELL LYMPHOMA
     Dates: start: 20090428
  13. METHOTREXATE [Concomitant]
     Indication: DIFFUSE LARGE B-CELL LYMPHOMA
     Dates: start: 20090717, end: 20090717
  14. MABTHERA [Suspect]
     Indication: DIFFUSE LARGE B-CELL LYMPHOMA
     Route: 041
     Dates: start: 20090126
  15. CYCLOPHOSPHAMIDE [Concomitant]
     Indication: DIFFUSE LARGE B-CELL LYMPHOMA
     Dates: start: 20090126
  16. VINDESINE [Concomitant]
     Indication: DIFFUSE LARGE B-CELL LYMPHOMA
     Dates: start: 20090126
  17. PIRARUBICIN [Concomitant]
     Indication: DIFFUSE LARGE B-CELL LYMPHOMA
     Dates: start: 20090626

REACTIONS (5)
  - RESPIRATORY FAILURE [None]
  - LUNG INFECTION [None]
  - DISEASE PROGRESSION [None]
  - THERMAL BURN [None]
  - CIRCULATORY COLLAPSE [None]
